FAERS Safety Report 7673711-2 (Version None)
Quarter: 2011Q3

REPORT INFORMATION
  Report Type: 
  Country: None (occurrence: None)
  Receive Date: 20110810
  Receipt Date: 20110728
  Transmission Date: 20111222
  Serious: Yes (Hospitalization)
  Sender: FDA-Public Use
  Company Number: JP-UCBSA-036781

PATIENT
  Sex: Male

DRUGS (10)
  1. ACTONEL [Suspect]
     Route: 048
  2. CERTOLIZUMAB PEGOL [Suspect]
     Indication: RHEUMATOID ARTHRITIS
     Dosage: RA0006:400MG/2WEEKS AT WEEKS 0,2 AND 4
     Route: 058
     Dates: start: 20091005
  3. PREDNISOLONE [Suspect]
     Dosage: DAILY DOSE :2.5MG
     Route: 048
     Dates: start: 20110124
  4. AZULFIDINE [Suspect]
     Indication: RHEUMATOID ARTHRITIS
     Dosage: DAILY DOSE:1000MG
     Route: 048
     Dates: start: 20090525
  5. ETODOLAC [Suspect]
     Indication: RHEUMATOID ARTHRITIS
     Dosage: DAILY DOSE:400MG
     Route: 048
     Dates: start: 20090330
  6. THIOLA [Suspect]
     Indication: RHEUMATOID ARTHRITIS
     Dosage: DAILY DOSE: 200MG
     Route: 048
     Dates: start: 20090223
  7. LANSOPRAZOLE [Suspect]
     Indication: GASTRITIS PROPHYLAXIS
     Dosage: DAILY DOSE:15MG
     Route: 048
  8. CERTOLIZUMAB PEGOL [Suspect]
     Route: 058
     Dates: start: 20100419
  9. PREDNISOLONE [Suspect]
     Dosage: DAILY DOSE:5MG
     Route: 048
     Dates: start: 20101004
  10. CERTOLIZUMAB PEGOL [Suspect]
     Dosage: RA0006:200MG/2WEEKS FROM WEEKS 6 -12
     Route: 058

REACTIONS (1)
  - PLEURAL EFFUSION [None]
